FAERS Safety Report 10224316 (Version 3)
Quarter: 2015Q2

REPORT INFORMATION
  Report Type: Spontaneous
  Country: US (occurrence: None)
  Receive Date: 20140605
  Receipt Date: 20150506
  Transmission Date: 20150821
  Serious: Yes (Hospitalization, Other)
  Sender: FDA-Public Use
  Company Number: ADR-2014-00952

PATIENT
  Age: 61 Year
  Sex: Female

DRUGS (2)
  1. ANESTHETIC [Suspect]
     Active Substance: BENZOCAINE\LIDOCAINE HYDROCHLORIDE
     Dates: start: 20140217
  2. BACLOFEN. [Suspect]
     Active Substance: BACLOFEN
     Indication: MUSCLE SPASTICITY
     Dosage: UNKNOWN DRUG (WRONG MEDICATION RECEIVED IN ER)?

REACTIONS (14)
  - Drug hypersensitivity [None]
  - Dermatitis contact [None]
  - Hallucination, visual [None]
  - Incorrect dose administered [None]
  - Allergy to metals [None]
  - Anaesthetic complication [None]
  - Apathy [None]
  - Delayed recovery from anaesthesia [None]
  - Depressed level of consciousness [None]
  - Device issue [None]
  - Wrong drug administered [None]
  - Overdose [None]
  - Pain [None]
  - Incision site rash [None]

NARRATIVE: CASE EVENT DATE: 20140217
